FAERS Safety Report 9636740 (Version 3)
Quarter: 2013Q4

REPORT INFORMATION
  Report Type: Report from Study
  Country: FR (occurrence: FR)
  Receive Date: 20131022
  Receipt Date: 20131118
  Transmission Date: 20140711
  Serious: Yes (Death, Hospitalization, Disabling, Other)
  Sender: FDA-Public Use
  Company Number: FR-MILLENNIUM PHARMACEUTICALS, INC.-2013-02930

PATIENT
  Sex: 0

DRUGS (9)
  1. VELCADE [Suspect]
     Indication: PLASMA CELL MYELOMA
     Dosage: 2.50 MG, UNK
     Route: 065
     Dates: start: 20120806, end: 20130318
  2. REVLIMID [Suspect]
     Indication: PLASMA CELL MYELOMA
     Dosage: 25 MG, UNK
     Route: 065
     Dates: start: 20120806, end: 20130314
  3. DEXAMETHASONE [Suspect]
     Indication: PLASMA CELL MYELOMA
     Dosage: 20 MG, UNK
     Route: 065
     Dates: start: 20120806, end: 20130318
  4. INNOHEP                            /00889602/ [Concomitant]
     Indication: PROPHYLAXIS
     Dosage: UNK
     Route: 042
     Dates: start: 20130206
  5. ZELITREX                           /01269701/ [Concomitant]
     Indication: PROPHYLAXIS
     Dosage: UNK
     Route: 048
     Dates: start: 20130206
  6. BACTRIM [Concomitant]
     Indication: PROPHYLAXIS
     Dosage: UNK
     Route: 048
     Dates: start: 20130206
  7. CLAMOXYL (AMOXICILLIN) [Concomitant]
     Indication: PROPHYLAXIS
     Dosage: UNK
     Route: 048
     Dates: start: 20130206
  8. INEXIUM                            /01479302/ [Concomitant]
     Indication: PROPHYLAXIS
     Dosage: UNK
     Route: 048
     Dates: start: 20130206
  9. ZOMETA [Concomitant]
     Indication: CALCIUM DEFICIENCY
     Dosage: UNK
     Route: 048
     Dates: start: 20130206

REACTIONS (3)
  - Plasma cell myeloma [Fatal]
  - Paraplegia [Not Recovered/Not Resolved]
  - Myelitis [Not Recovered/Not Resolved]
